FAERS Safety Report 9495395 (Version 2)
Quarter: 2013Q4

REPORT INFORMATION
  Report Type: Spontaneous
  Country: US (occurrence: US)
  Receive Date: 20130903
  Receipt Date: 20131008
  Transmission Date: 20140711
  Serious: No
  Sender: FDA-Public Use
  Company Number: US-009507513-1309USA001105

PATIENT
  Sex: Male

DRUGS (1)
  1. LOTRIMIN ULTRA [Suspect]
     Indication: TINEA CRURIS
     Dosage: UNK, QD
     Route: 061
     Dates: start: 20130807, end: 20130821

REACTIONS (2)
  - Drug ineffective [Unknown]
  - Product label issue [Unknown]
